FAERS Safety Report 4865773-2 (Version None)
Quarter: 2005Q4

REPORT INFORMATION
  Report Type: 
  Country: None (occurrence: None)
  Receive Date: 20051223
  Receipt Date: 20051215
  Transmission Date: 20060501
  Serious: Yes (Other)
  Sender: FDA-Public Use
  Company Number: PHBS2005NZ18533

PATIENT
  Age: 64 Year
  Sex: Female

DRUGS (1)
  1. ZOMETA [Suspect]
     Indication: OSTEOPOROSIS
     Dosage: 4 MG, UNK
     Route: 042
     Dates: start: 20050410

REACTIONS (2)
  - GINGIVITIS [None]
  - OSTEONECROSIS [None]
